FAERS Safety Report 5077913-3 (Version None)
Quarter: 2006Q3

REPORT INFORMATION
  Report Type: 
  Country: None (occurrence: None)
  Receive Date: 20060808
  Receipt Date: 20060713
  Transmission Date: 20061208
  Serious: Yes (Other)
  Sender: FDA-Public Use
  Company Number: S06-UKI-03098-01

PATIENT
  Age: 41 Year
  Sex: Male

DRUGS (5)
  1. CITALOPRAM HYDROBROMIDE [Suspect]
     Indication: DEPRESSION
  2. MIRTAZAPINE [Suspect]
  3. VENLAFAXINE HCL [Suspect]
  4. RABEPRAZOLE SODIUM [Concomitant]
  5. ATENOLOL [Concomitant]

REACTIONS (28)
  - ABNORMAL DREAMS [None]
  - AGEUSIA [None]
  - AGITATION [None]
  - ANHIDROSIS [None]
  - ANOSMIA [None]
  - BACK PAIN [None]
  - CONFUSIONAL STATE [None]
  - DIARRHOEA [None]
  - DIZZINESS [None]
  - EMOTIONAL DISORDER [None]
  - FATIGUE [None]
  - FEELING ABNORMAL [None]
  - FEELING HOT AND COLD [None]
  - HALLUCINATION [None]
  - HEADACHE [None]
  - HYPOACUSIS [None]
  - HYPOAESTHESIA [None]
  - INFLUENZA LIKE ILLNESS [None]
  - INSOMNIA [None]
  - MALAISE [None]
  - MUSCLE SPASMS [None]
  - PARAESTHESIA [None]
  - PERSONALITY CHANGE [None]
  - SENSORY LOSS [None]
  - SEROTONIN SYNDROME [None]
  - SOMNOLENCE [None]
  - TREMOR [None]
  - VISUAL ACUITY REDUCED [None]
